FAERS Safety Report 25524292 (Version 1)
Quarter: 2025Q3

REPORT INFORMATION
  Report Type: Spontaneous
  Country: CN (occurrence: CN)
  Receive Date: 20250707
  Receipt Date: 20250707
  Transmission Date: 20251021
  Serious: Yes (Life-Threatening, Hospitalization)
  Sender: ELI LILLY AND COMPANY
  Company Number: CN-Merck Healthcare KGaA-2025033659

PATIENT
  Age: 58 Year
  Sex: Female
  Weight: 40 kg

DRUGS (6)
  1. ERBITUX [Suspect]
     Active Substance: CETUXIMAB
     Indication: Adenocarcinoma of colon
     Dosage: 300 MG, UNK
     Route: 041
     Dates: start: 20250614, end: 20250614
  2. ELOXATIN [Suspect]
     Active Substance: OXALIPLATIN
     Indication: Adenocarcinoma of colon
     Dosage: 120 MG, 2/M
     Route: 041
     Dates: start: 20250614, end: 20250614
  3. FLUOROURACIL [Suspect]
     Active Substance: FLUOROURACIL
     Indication: Adenocarcinoma of colon
     Dosage: 3.5 G, 2/M
     Route: 042
     Dates: start: 20250614, end: 20250614
  4. SODIUM CHLORIDE [Concomitant]
     Active Substance: SODIUM CHLORIDE
     Indication: Adenocarcinoma of colon
     Dosage: 110 ML, 2/M
     Route: 042
     Dates: start: 20250614, end: 20250614
  5. SODIUM CHLORIDE [Concomitant]
     Active Substance: SODIUM CHLORIDE
     Dosage: 250 ML, WEEKLY (1/W)
     Route: 041
     Dates: start: 20250614, end: 20250614
  6. DEXTROSE [Concomitant]
     Active Substance: DEXTROSE MONOHYDRATE
     Indication: Adenocarcinoma of colon
     Dosage: 500 ML, 2/M
     Route: 041
     Dates: start: 20250614, end: 20250614

REACTIONS (4)
  - Haemoglobin decreased [Recovering/Resolving]
  - White blood cell count decreased [Recovering/Resolving]
  - Platelet count decreased [Recovering/Resolving]
  - Neutrophil count decreased [Recovering/Resolving]

NARRATIVE: CASE EVENT DATE: 20250621
